FAERS Safety Report 16866698 (Version 1)
Quarter: 2019Q3

REPORT INFORMATION
  Report Type: Spontaneous
  Country: AT (occurrence: AT)
  Receive Date: 20190930
  Receipt Date: 20190930
  Transmission Date: 20191005
  Serious: Yes (Other)
  Sender: FDA-Public Use
  Company Number: AT-TEVA-2019-AT-1113936

PATIENT
  Age: 68 Year
  Sex: Female

DRUGS (1)
  1. DICLOBENE [Suspect]
     Active Substance: DICLOFENAC SODIUM
     Route: 042
     Dates: start: 20190515, end: 20190515

REACTIONS (3)
  - Pruritus [Recovered/Resolved]
  - Type IV hypersensitivity reaction [Recovered/Resolved]
  - Dizziness [Recovered/Resolved]

NARRATIVE: CASE EVENT DATE: 20190515
